FAERS Safety Report 4929405-7 (Version None)
Quarter: 2006Q1

REPORT INFORMATION
  Report Type: 
  Country: None (occurrence: None)
  Receive Date: 20060127
  Receipt Date: 20051215
  Transmission Date: 20060701
  Serious: Yes (Other)
  Sender: FDA-Public Use
  Company Number: 2005171542

PATIENT
  Sex: Female

DRUGS (2)
  1. LYRICA [Suspect]
     Indication: CONVULSION
     Dosage: 25 MG (25 MG, 1 IN 1 D)
     Dates: start: 20051211
  2. VALSARTAN [Concomitant]

REACTIONS (1)
  - WEIGHT INCREASED [None]
